FAERS Safety Report 24888226 (Version 1)
Quarter: 2025Q1

REPORT INFORMATION
  Report Type: Spontaneous
  Country: US (occurrence: None)
  Receive Date: 20250127
  Receipt Date: 20250127
  Transmission Date: 20250409
  Serious: No
  Sender: UNICHEM
  Company Number: US-ARIS GLOBAL-UCM202410-001414

PATIENT
  Sex: Female

DRUGS (4)
  1. MELOXICAM [Suspect]
     Active Substance: MELOXICAM
     Indication: Back pain
  2. MELOXICAM [Suspect]
     Active Substance: MELOXICAM
     Indication: Neuropathy peripheral
  3. MELOXICAM [Suspect]
     Active Substance: MELOXICAM
     Indication: Pain
  4. RIFAXIMIN [Concomitant]
     Active Substance: RIFAXIMIN
     Indication: Product used for unknown indication

REACTIONS (2)
  - Irritable bowel syndrome [Unknown]
  - Gastrointestinal microorganism overgrowth [Unknown]
